FAERS Safety Report 20110422 (Version 2)
Quarter: 2022Q1

REPORT INFORMATION
  Report Type: Spontaneous
  Country: US (occurrence: US)
  Receive Date: 20211124
  Receipt Date: 20220207
  Transmission Date: 20220424
  Serious: No
  Sender: FDA-Public Use
  Company Number: US-INSUD PHARMA-2111US02817

PATIENT

DRUGS (1)
  1. SLYND [Suspect]
     Active Substance: DROSPIRENONE
     Indication: Menstruation irregular
     Dosage: UNKNOWN
     Route: 048

REACTIONS (3)
  - Breast discharge [Unknown]
  - Galactorrhoea [Unknown]
  - Intentional product use issue [Unknown]
